FAERS Safety Report 25319734 (Version 2)
Quarter: 2025Q2

REPORT INFORMATION
  Report Type: Report from Study
  Country: EG (occurrence: EG)
  Receive Date: 20250515
  Receipt Date: 20250520
  Transmission Date: 20250717
  Serious: Yes (Life-Threatening, Disabling, Other)
  Sender: NOVARTIS
  Company Number: EG-002147023-NVSC2025EG076063

PATIENT
  Sex: Male
  Weight: 97 kg

DRUGS (12)
  1. ENTRESTO [Suspect]
     Active Substance: SACUBITRIL\VALSARTAN
     Indication: Cardiac failure
     Dosage: 50 MG, BID (CONCENTRATION 50 MG) (START DATE: 2 YEARS AGO) (1 TABLET TWICE A DAY)
     Route: 048
     Dates: end: 2023
  2. ENTRESTO [Suspect]
     Active Substance: SACUBITRIL\VALSARTAN
     Dosage: 50 MG, QD (STRENGTH: 50 MG) (START DATE: 2 YEARS AGO, END DATE: 1 YEAR AGO)) (ONE TABLET ONCE DAILY
     Route: 048
  3. ENTRESTO [Suspect]
     Active Substance: SACUBITRIL\VALSARTAN
     Dosage: 100 MG, BID (CONCENTRATION 100 MG) (1 TABLET TWICE A DAY)
     Route: 048
     Dates: start: 2023
  4. Empacoza plus [Concomitant]
     Indication: Diabetes mellitus
     Dosage: 1 DOSAGE FORM, QD (10/5)
     Route: 048
     Dates: start: 202405
  5. Diamicron [Concomitant]
     Indication: Diabetes mellitus
     Dosage: 1 DOSAGE FORM, QD (60 MR) (TABLET)
     Route: 048
     Dates: start: 202405
  6. ASPIRIN [Concomitant]
     Active Substance: ASPIRIN
     Indication: Platelet disorder
     Dosage: 2 DOSAGE FORM (CHEWABLE TABLET)
     Route: 048
     Dates: start: 202301
  7. ASPIRIN [Concomitant]
     Active Substance: ASPIRIN
     Indication: Platelet disorder
     Dosage: UNK (81 MG, TABLET)
     Route: 048
     Dates: start: 202301
  8. TRENTAL [Concomitant]
     Active Substance: PENTOXIFYLLINE
     Indication: Cardiovascular disorder
     Dosage: 400 MG, QD
     Route: 048
     Dates: start: 202301
  9. ATORVASTATIN CALCIUM [Concomitant]
     Active Substance: ATORVASTATIN CALCIUM
     Indication: Cardiovascular disorder
     Dosage: 20 MG, QD
     Route: 048
     Dates: start: 202301
  10. ATORVASTATIN CALCIUM\EZETIMIBE [Concomitant]
     Active Substance: ATORVASTATIN CALCIUM\EZETIMIBE
     Indication: Cardiovascular disorder
     Dosage: 1 DOSAGE FORM (10/20MG)
     Route: 048
     Dates: start: 202503
  11. METOPROLOL SUCCINATE [Concomitant]
     Active Substance: METOPROLOL SUCCINATE
     Indication: Cardiac disorder
     Dosage: 50 MG, QD (TABLET)
     Route: 048
     Dates: start: 202503
  12. TORSEMIDE [Concomitant]
     Active Substance: TORSEMIDE
     Indication: Oliguria
     Dosage: 20 MG, QD (TABLET)
     Route: 048
     Dates: start: 202301

REACTIONS (9)
  - Myocardial infarction [Recovering/Resolving]
  - Diabetic foot [Recovering/Resolving]
  - Cataract [Not Recovered/Not Resolved]
  - Gangrene [Recovering/Resolving]
  - Peripheral arterial occlusive disease [Recovering/Resolving]
  - Ejection fraction decreased [Not Recovered/Not Resolved]
  - Limb injury [Recovering/Resolving]
  - Localised infection [Not Recovered/Not Resolved]
  - Hypotension [Unknown]

NARRATIVE: CASE EVENT DATE: 20240101
